FAERS Safety Report 18538916 (Version 1)
Quarter: 2020Q4

REPORT INFORMATION
  Report Type: Spontaneous
  Country: US (occurrence: US)
  Receive Date: 20201124
  Receipt Date: 20201124
  Transmission Date: 20210114
  Serious: No
  Sender: FDA-Public Use
  Company Number: NVSC2020US313880

PATIENT
  Age: 68 Year
  Sex: Female

DRUGS (2)
  1. VOLTAREN EMULGEL [Suspect]
     Active Substance: DICLOFENAC DIETHYLAMINE
     Indication: ARTHRITIS
     Dosage: UNK
     Route: 065
  2. VOLTAREN EMULGEL [Suspect]
     Active Substance: DICLOFENAC DIETHYLAMINE
     Indication: JOINT DISLOCATION

REACTIONS (3)
  - Pruritus [Unknown]
  - Product use in unapproved indication [Unknown]
  - Off label use [Unknown]
